FAERS Safety Report 7336477-1 (Version None)
Quarter: 2011Q1

REPORT INFORMATION
  Report Type: 
  Country: None (occurrence: None)
  Receive Date: 20110307
  Receipt Date: 20110302
  Transmission Date: 20110831
  Serious: Yes (Other)
  Sender: FDA-Public Use
  Company Number: US-GILEAD-2011-0035954

PATIENT
  Age: 37 Year
  Sex: Female

DRUGS (5)
  1. RALTEGRAVIR [Concomitant]
     Route: 048
     Dates: start: 20110113
  2. RALTEGRAVIR [Concomitant]
     Indication: HIV INFECTION
     Route: 048
     Dates: end: 20101007
  3. KALETRA [Concomitant]
     Indication: HIV INFECTION
     Route: 048
     Dates: start: 20101007
  4. VIREAD [Suspect]
     Route: 048
  5. EPZICOM [Concomitant]
     Indication: HIV INFECTION
     Route: 048

REACTIONS (1)
  - ABORTION SPONTANEOUS [None]
